FAERS Safety Report 24102057 (Version 1)
Quarter: 2024Q3

REPORT INFORMATION
  Report Type: Spontaneous
  Country: US (occurrence: US)
  Receive Date: 20240717
  Receipt Date: 20240717
  Transmission Date: 20241017
  Serious: Yes (Hospitalization, Other)
  Sender: RANBAXY
  Company Number: US-SUN PHARMACEUTICAL INDUSTRIES LTD-2024R1-456780

PATIENT
  Age: 51 Year
  Sex: Female

DRUGS (5)
  1. PREDNISONE [Suspect]
     Active Substance: PREDNISONE
     Indication: Hypereosinophilic syndrome
     Dosage: UNK
     Route: 048
  2. DOBUTAMINE [Suspect]
     Active Substance: DOBUTAMINE HYDROCHLORIDE
     Indication: Hypereosinophilic syndrome
     Dosage: UNK
     Route: 065
  3. BUMEX [Suspect]
     Active Substance: BUMETANIDE
     Indication: Hypereosinophilic syndrome
     Dosage: 2 MILLIGRAM, DAILY
     Route: 048
  4. ELIQUIS [Suspect]
     Active Substance: APIXABAN
     Indication: Hypereosinophilic syndrome
     Dosage: 5 MILLIGRAM, BID
     Route: 065
  5. MEPOLIZUMAB [Suspect]
     Active Substance: MEPOLIZUMAB
     Indication: Hypereosinophilic syndrome
     Dosage: 300 MILLIGRAM EVERY 4 WEEKS
     Route: 058

REACTIONS (1)
  - Disease recurrence [Unknown]
